FAERS Safety Report 5757793-0 (Version None)
Quarter: 2008Q2

REPORT INFORMATION
  Report Type: 
  Country: None (occurrence: None)
  Receive Date: 20080529
  Receipt Date: 20080520
  Transmission Date: 20081010
  Serious: Yes (Hospitalization)
  Sender: FDA-Public Use
  Company Number: OMPQ-NO-0805S-0351

PATIENT
  Sex: Female

DRUGS (1)
  1. OMNIPAQUE 140 [Suspect]
     Indication: SPINAL MYELOGRAM
     Dosage: SINGLE DOSE, I.T. ; SINGLE DOSE
     Route: 037

REACTIONS (1)
  - CSF PROTEIN INCREASED [None]
